FAERS Safety Report 22706784 (Version 10)
Quarter: 2024Q2

REPORT INFORMATION
  Report Type: Report from Study
  Country: DE (occurrence: DE)
  Receive Date: 20230714
  Receipt Date: 20240625
  Transmission Date: 20240716
  Serious: Yes (Death, Life-Threatening, Hospitalization, Other)
  Sender: FDA-Public Use
  Company Number: DE-JNJFOC-20230164704

PATIENT
  Age: 72 Year
  Sex: Male
  Weight: 65 kg

DRUGS (28)
  1. BORTEZOMIB [Suspect]
     Active Substance: BORTEZOMIB
     Indication: Plasma cell myeloma
     Dosage: UNK, AS A PART OF FIRST CYCLE OF TREATEMNT
     Route: 058
     Dates: start: 20221117
  2. BORTEZOMIB [Suspect]
     Active Substance: BORTEZOMIB
     Indication: Drug therapy
     Dosage: UNK
     Route: 058
     Dates: start: 20221228
  3. BORTEZOMIB [Suspect]
     Active Substance: BORTEZOMIB
     Dosage: UNK
     Route: 058
     Dates: start: 20230204
  4. BORTEZOMIB [Suspect]
     Active Substance: BORTEZOMIB
     Dosage: 3 MILLIGRAM
     Route: 058
     Dates: start: 20230224, end: 20230224
  5. BORTEZOMIB [Suspect]
     Active Substance: BORTEZOMIB
     Dosage: 3 MILLIGRAM
     Route: 058
     Dates: start: 20230228, end: 20230228
  6. CYCLOPHOSPHAMIDE [Suspect]
     Active Substance: CYCLOPHOSPHAMIDE
     Indication: Plasma cell myeloma
     Dosage: UNK
     Route: 065
     Dates: start: 20221229, end: 20221231
  7. CYCLOPHOSPHAMIDE [Suspect]
     Active Substance: CYCLOPHOSPHAMIDE
     Indication: Salvage therapy
     Dosage: UNK
     Route: 065
  8. ETOPOSIDE [Suspect]
     Active Substance: ETOPOSIDE
     Indication: Plasma cell myeloma
     Dosage: UNK
     Route: 065
  9. CARFILZOMIB [Suspect]
     Active Substance: CARFILZOMIB
     Indication: Plasma cell myeloma
     Dosage: UNK
     Route: 065
  10. DOXORUBICIN [Suspect]
     Active Substance: DOXORUBICIN
     Indication: Plasma cell myeloma
     Dosage: AS A PART OF FIRST CYCLE OF TREATMENT
     Route: 065
     Dates: start: 20221117
  11. DOXORUBICIN [Suspect]
     Active Substance: DOXORUBICIN
     Indication: Salvage therapy
     Dosage: UNK
     Route: 065
     Dates: start: 20221229, end: 20221231
  12. DOXORUBICIN [Suspect]
     Active Substance: DOXORUBICIN
     Dosage: UNK
     Route: 065
  13. DARZALEX [Suspect]
     Active Substance: DARATUMUMAB
     Indication: Plasma cell myeloma
     Dosage: AS A PART OF FIRST CYCLE OF TREATMENT
     Route: 042
     Dates: start: 20221117
  14. DARZALEX [Suspect]
     Active Substance: DARATUMUMAB
     Indication: Drug therapy
     Dosage: UNK
     Route: 042
     Dates: start: 20221212
  15. DARZALEX [Suspect]
     Active Substance: DARATUMUMAB
     Dosage: 1120 MILLIGRAM
     Route: 042
     Dates: start: 20230224, end: 20230224
  16. DARZALEX [Suspect]
     Active Substance: DARATUMUMAB
     Dosage: 1120 MILLIGRAM
     Route: 042
     Dates: start: 20230228, end: 20230228
  17. DARZALEX [Suspect]
     Active Substance: DARATUMUMAB
     Dosage: UNK
     Route: 042
     Dates: start: 20230204
  18. DEXAMETHASONE [Suspect]
     Active Substance: DEXAMETHASONE
     Indication: Sepsis
     Dosage: UNK, AS A PART OF FIRST CYCLE OF TREATEMNT
     Route: 065
     Dates: start: 20221117
  19. DEXAMETHASONE [Suspect]
     Active Substance: DEXAMETHASONE
     Dosage: AS A PART OF FIRST CYCLE OF TREATMENT
     Route: 065
     Dates: start: 20230320, end: 20230320
  20. POMALIDOMIDE [Suspect]
     Active Substance: POMALIDOMIDE
     Indication: Product used for unknown indication
     Dosage: AS A PART OF FIRST CYCLE OF TREATMENT
     Route: 065
     Dates: start: 20221117
  21. THALIDOMIDE [Suspect]
     Active Substance: THALIDOMIDE
     Indication: Product used for unknown indication
     Dosage: UNK
     Route: 065
  22. MELPHALAN [Suspect]
     Active Substance: MELPHALAN
     Indication: Product used for unknown indication
     Dosage: 95 MILLIGRAM
     Route: 042
     Dates: start: 20230310, end: 20230311
  23. TECLISTAMAB [Suspect]
     Active Substance: TECLISTAMAB
     Indication: Product used for unknown indication
     Dosage: AFTER CYCLOPHOSPHAMIDE,DOXORUBICIN ADMINISTRA
     Route: 065
  24. MEROPENEM [Concomitant]
     Active Substance: MEROPENEM
     Indication: Bacterial infection
     Dosage: UNK
     Route: 042
     Dates: start: 20230321, end: 20230322
  25. MEROPENEM [Concomitant]
     Active Substance: MEROPENEM
     Indication: Sepsis
  26. TAZOBACTAM [Concomitant]
     Active Substance: TAZOBACTAM
     Indication: Sepsis
     Dosage: UNK
     Route: 042
     Dates: start: 20230320, end: 20230321
  27. ACYCLOVIR [Concomitant]
     Active Substance: ACYCLOVIR
     Indication: Sepsis
     Dosage: UNK
     Route: 042
     Dates: start: 20230320, end: 20230322
  28. PIPERACILLIN [Concomitant]
     Active Substance: PIPERACILLIN
     Indication: Sepsis
     Dosage: UNK
     Route: 042
     Dates: start: 20230320, end: 20230321

REACTIONS (15)
  - Sepsis [Fatal]
  - Multiple organ dysfunction syndrome [Fatal]
  - Bone marrow failure [Recovered/Resolved]
  - General physical health deterioration [Unknown]
  - Device related sepsis [Unknown]
  - Pneumonia [Unknown]
  - Pulmonary oedema [Recovered/Resolved]
  - Renal failure [Not Recovered/Not Resolved]
  - Depressed level of consciousness [Unknown]
  - Disturbance in attention [Unknown]
  - Hypertension [Not Recovered/Not Resolved]
  - Tachycardia [Unknown]
  - Pyrexia [Recovered/Resolved]
  - Tachypnoea [Unknown]
  - Overdose [Unknown]

NARRATIVE: CASE EVENT DATE: 20221218
